FAERS Safety Report 18228641 (Version 1)
Quarter: 2020Q3

REPORT INFORMATION
  Report Type: Spontaneous
  Country: GB (occurrence: GB)
  Receive Date: 20200903
  Receipt Date: 20200903
  Transmission Date: 20201103
  Serious: No
  Sender: FDA-Public Use
  Company Number: GB-BECTON DICKINSON-2020BDN00130

PATIENT
  Age: 30 Year
  Sex: Female

DRUGS (1)
  1. CHLORAPREP [Suspect]
     Active Substance: CHLORHEXIDINE GLUCONATE\ISOPROPYL ALCOHOL
     Indication: INFECTION PROPHYLAXIS
     Dosage: UNK
     Route: 061
     Dates: start: 20200430, end: 20200430

REACTIONS (2)
  - Scratch [Recovered/Resolved]
  - Product package associated injury [Recovered/Resolved]

NARRATIVE: CASE EVENT DATE: 20200430
